FAERS Safety Report 9370197 (Version 2)
Quarter: 2013Q3

REPORT INFORMATION
  Report Type: Spontaneous
  Country: ES (occurrence: ES)
  Receive Date: 20130626
  Receipt Date: 20130701
  Transmission Date: 20140515
  Serious: Yes (Hospitalization, Other)
  Sender: FDA-Public Use
  Company Number: ES-JNJFOC-20130613576

PATIENT
  Age: 79 Year
  Sex: Male
  Weight: 88 kg

DRUGS (9)
  1. XARELTO [Suspect]
     Indication: CEREBROVASCULAR ACCIDENT PROPHYLAXIS
     Route: 048
     Dates: start: 20130201, end: 20130614
  2. XARELTO [Suspect]
     Indication: ATRIAL FIBRILLATION
     Route: 048
     Dates: start: 20130201, end: 20130614
  3. AMLODIPINE [Concomitant]
     Indication: HYPERTENSION
     Route: 065
  4. VALSARTAN [Concomitant]
     Indication: HYPERTENSION
     Route: 065
  5. HYDROCHLOROTHIAZIDE [Concomitant]
     Indication: HYPERTENSION
     Route: 065
  6. BISOPROLOL [Concomitant]
     Indication: HYPERTENSION
     Route: 065
  7. BISOPROLOL [Concomitant]
     Indication: ATRIAL FIBRILLATION
     Route: 065
  8. METFORMIN [Concomitant]
     Indication: DIABETES MELLITUS
     Route: 065
  9. GLICLAZIDE [Concomitant]
     Indication: DIABETES MELLITUS
     Route: 065

REACTIONS (2)
  - Cerebrovascular accident [Recovered/Resolved with Sequelae]
  - Drug ineffective [Unknown]
